FAERS Safety Report 8369266-X (Version None)
Quarter: 2012Q2

REPORT INFORMATION
  Report Type: 
  Country: None (occurrence: None)
  Receive Date: 20120518
  Receipt Date: 20120511
  Transmission Date: 20120825
  Serious: Yes (Other)
  Sender: FDA-Public Use
  Company Number: PHEH2012US002777

PATIENT
  Sex: Female
  Weight: 68.027 kg

DRUGS (2)
  1. SANDOSTATIN LAR [Suspect]
     Dosage: UNK UKN, UNK
     Route: 030
  2. SANDOSTATIN LAR [Suspect]
     Indication: METASTATIC CARCINOID TUMOUR
     Dosage: 80 MG, QMO
     Route: 030
     Dates: start: 20090402

REACTIONS (5)
  - RECURRENT CANCER [None]
  - DEHYDRATION [None]
  - RENAL FUNCTION TEST ABNORMAL [None]
  - RENAL FAILURE CHRONIC [None]
  - DIARRHOEA [None]
